FAERS Safety Report 9714186 (Version 1)
Quarter: 2013Q4

REPORT INFORMATION
  Report Type: Spontaneous
  Country: US (occurrence: US)
  Receive Date: 20131126
  Receipt Date: 20131126
  Transmission Date: 20140711
  Serious: No
  Sender: FDA-Public Use
  Company Number: US-GILEAD-2008-0019199

PATIENT
  Sex: Female
  Weight: 92.99 kg

DRUGS (4)
  1. LETAIRIS [Suspect]
     Indication: PULMONARY ARTERIAL HYPERTENSION
     Route: 048
     Dates: start: 20081112
  2. REVATIO [Concomitant]
     Route: 048
  3. PRINIVIL [Concomitant]
     Route: 048
  4. NISOLDIPINE ER [Concomitant]
     Route: 048

REACTIONS (2)
  - Unevaluable event [Unknown]
  - Eye swelling [Unknown]
